FAERS Safety Report 16312944 (Version 1)
Quarter: 2019Q2

REPORT INFORMATION
  Report Type: Spontaneous
  Country: US (occurrence: US)
  Receive Date: 20190515
  Receipt Date: 20190515
  Transmission Date: 20190711
  Serious: Yes (Life-Threatening, Other)
  Sender: FDA-Public Use
  Company Number: US-ACCORD-127412

PATIENT
  Age: 16 Year
  Sex: Female

DRUGS (2)
  1. CISPLATIN. [Concomitant]
     Active Substance: CISPLATIN
     Indication: NASOPHARYNGEAL CANCER STAGE IV
     Dosage: ON DAY 1
  2. FLUOROURACIL. [Suspect]
     Active Substance: FLUOROURACIL
     Indication: NASOPHARYNGEAL CANCER STAGE IV
     Dosage: 1,000 MG/M2/DAY CONTINUOUS INFUSION ON DAYS 1-4

REACTIONS (2)
  - Cardiomyopathy [Recovered/Resolved]
  - Cardiotoxicity [Recovered/Resolved]
